FAERS Safety Report 4279997-9 (Version None)
Quarter: 2004Q1

REPORT INFORMATION
  Report Type: 
  Country: None (occurrence: None)
  Receive Date: 20040126
  Receipt Date: 20040119
  Transmission Date: 20041129
  Serious: Yes (Life-Threatening, Hospitalization)
  Sender: FDA-Public Use
  Company Number: 2003-01-4208

PATIENT
  Age: 48 Year
  Sex: Male
  Weight: 88 kg

DRUGS (7)
  1. REBETOL [Suspect]
     Indication: HEPATITIS C
     Dosage: 800 MG QD ORAL
     Route: 048
     Dates: start: 20020603, end: 20021129
  2. INTRON A [Suspect]
     Indication: HEPATITIS C
     Dosage: 6 MU QD-TIW* INTRAMUSCUL
     Route: 030
     Dates: start: 20020603, end: 20021129
  3. MANIDIPINE [Concomitant]
  4. DOXAZOSIN MESYLATE [Concomitant]
  5. PL (SALICYLAMIDE/APAP/CAFFEINE/PROMETHAZINE) [Concomitant]
  6. WILD CHERRY BARK [Concomitant]
  7. CHLORPHENIRAMINE MALEATE [Concomitant]

REACTIONS (16)
  - ANOREXIA [None]
  - BUNDLE BRANCH BLOCK LEFT [None]
  - CARDIAC FAILURE [None]
  - CONGESTIVE CARDIOMYOPATHY [None]
  - COUGH [None]
  - HAEMATOCRIT DECREASED [None]
  - HAEMOGLOBIN DECREASED [None]
  - HYPERTROPHIC CARDIOMYOPATHY [None]
  - INSOMNIA [None]
  - NASOPHARYNGITIS [None]
  - OEDEMA PERIPHERAL [None]
  - PLEURAL EFFUSION [None]
  - PULMONARY CONGESTION [None]
  - PYREXIA [None]
  - RED BLOOD CELL COUNT DECREASED [None]
  - TACHYCARDIA [None]
